FAERS Safety Report 16212687 (Version 1)
Quarter: 2019Q2

REPORT INFORMATION
  Report Type: Spontaneous
  Country: US (occurrence: US)
  Receive Date: 20190418
  Receipt Date: 20190418
  Transmission Date: 20190711
  Serious: No
  Sender: FDA-Public Use
  Company Number: US-ASTELLAS-2018US032127

PATIENT
  Age: 66 Year
  Sex: Male

DRUGS (1)
  1. LEXISCAN [Suspect]
     Active Substance: REGADENOSON
     Indication: SCAN MYOCARDIAL PERFUSION
     Dosage: 0.08 MG/ML, OTHER (ONCE). ADMINISTERED OVER 10-15 SECONDS.
     Route: 065
     Dates: start: 20180713, end: 20180713

REACTIONS (2)
  - Incorrect product administration duration [Unknown]
  - Medication error [Unknown]

NARRATIVE: CASE EVENT DATE: 20180713
